FAERS Safety Report 16643797 (Version 3)
Quarter: 2020Q2

REPORT INFORMATION
  Report Type: Spontaneous
  Country: US (occurrence: US)
  Receive Date: 20190729
  Receipt Date: 20200602
  Transmission Date: 20200713
  Serious: Yes (Other)
  Sender: FDA-Public Use
  Company Number: US-GILEAD-2019-0419930

PATIENT
  Age: 57 Year
  Sex: Male
  Weight: 102.04 kg

DRUGS (53)
  1. TRUVADA [Suspect]
     Active Substance: EMTRICITABINE\TENOFOVIR DISOPROXIL FUMARATE
     Indication: PRODUCT USED FOR UNKNOWN INDICATION
     Dosage: UNK
     Route: 048
     Dates: start: 2001
  2. CYCLOBENZAPRINE. [Concomitant]
     Active Substance: CYCLOBENZAPRINE
  3. VICODIN [Concomitant]
     Active Substance: ACETAMINOPHEN\HYDROCODONE BITARTRATE
  4. REYATAZ [Concomitant]
     Active Substance: ATAZANAVIR SULFATE
  5. CITALOPRAM [Concomitant]
     Active Substance: CITALOPRAM HYDROBROMIDE
  6. SULFAMETHOXAZOLE [Concomitant]
     Active Substance: SULFAMETHOXAZOLE
  7. GABAPENTIN. [Concomitant]
     Active Substance: GABAPENTIN
  8. BUTALBITAL, ACETAMINOPHEN, AND CAFFEINE [Concomitant]
     Active Substance: ACETAMINOPHEN\BUTALBITAL\CAFFEINE
  9. PREZISTA [Concomitant]
     Active Substance: DARUNAVIR ETHANOLATE
  10. SUPREP BOWEL PREP [Concomitant]
     Active Substance: MAGNESIUM SULFATE\POTASSIUM SULFATE\SODIUM SULFATE
  11. IBUPROFEN. [Concomitant]
     Active Substance: IBUPROFEN
  12. ZANAFLEX [Concomitant]
     Active Substance: TIZANIDINE HYDROCHLORIDE
  13. VITAMIN D [VITAMIN D NOS] [Concomitant]
     Active Substance: VITAMIN D NOS
     Dosage: UNK
     Dates: start: 20140728
  14. TRUVADA [Suspect]
     Active Substance: EMTRICITABINE\TENOFOVIR DISOPROXIL FUMARATE
     Dosage: UNK
     Route: 048
     Dates: start: 20110803, end: 201801
  15. PREVACID [Concomitant]
     Active Substance: LANSOPRAZOLE
  16. DOXYCYCLINE. [Concomitant]
     Active Substance: DOXYCYCLINE
  17. METOCLOPRAMIDE. [Concomitant]
     Active Substance: METOCLOPRAMIDE
  18. CLONAZEPAM. [Concomitant]
     Active Substance: CLONAZEPAM
  19. PERCOCET [OXYCODONE HYDROCHLORIDE;OXYCODONE TEREPHTHALATE;PARACETAMOL] [Concomitant]
     Active Substance: ACETAMINOPHEN\OXYCODONE HYDROCHLORIDE\OXYCODONE TEREPHTHALATE
  20. DIPHENHYDRAMINE. [Concomitant]
     Active Substance: DIPHENHYDRAMINE
  21. LANSOPRAZOLE. [Concomitant]
     Active Substance: LANSOPRAZOLE
  22. NAPROXEN. [Concomitant]
     Active Substance: NAPROXEN
  23. TIZANIDINE. [Concomitant]
     Active Substance: TIZANIDINE
  24. ENOXAPARIN [Concomitant]
     Active Substance: ENOXAPARIN
  25. CARBIDOPA. [Concomitant]
     Active Substance: CARBIDOPA
  26. DARUNAVIR ETHANOLATE. [Concomitant]
     Active Substance: DARUNAVIR ETHANOLATE
  27. ZOLPIDEM [Concomitant]
     Active Substance: ZOLPIDEM TARTRATE
  28. PROPANOLOL BOEHRINGER [Concomitant]
  29. TRAMADOL. [Concomitant]
     Active Substance: TRAMADOL
  30. LAMOTRIGINE. [Concomitant]
     Active Substance: LAMOTRIGINE
  31. NORVIR [Concomitant]
     Active Substance: RITONAVIR
  32. LISINOPRIL. [Concomitant]
     Active Substance: LISINOPRIL
  33. AMLODIPINE [Concomitant]
     Active Substance: AMLODIPINE BESYLATE
  34. BUSPIRONE [Concomitant]
     Active Substance: BUSPIRONE HYDROCHLORIDE
  35. HYDROCHLOROTHIAZIDE. [Concomitant]
     Active Substance: HYDROCHLOROTHIAZIDE
  36. CLOTRIMAZOLE. [Concomitant]
     Active Substance: CLOTRIMAZOLE
  37. OXYCODONE AND ACETAMINOPHEN [Concomitant]
     Active Substance: ACETAMINOPHEN\OXYCODONE HYDROCHLORIDE
  38. CLORAZEPATE [Concomitant]
     Active Substance: CLORAZEPATE DIPOTASSIUM
  39. HYDROCODONE [Concomitant]
     Active Substance: HYDROCODONE
  40. METAXALONE. [Concomitant]
     Active Substance: METAXALONE
  41. ATORVASTATIN [Concomitant]
     Active Substance: ATORVASTATIN
  42. NORCO [Concomitant]
     Active Substance: ACETAMINOPHEN\HYDROCODONE BITARTRATE
  43. MUPIROCIN. [Concomitant]
     Active Substance: MUPIROCIN
  44. RANITIDINE. [Concomitant]
     Active Substance: RANITIDINE
  45. DONEPEZIL. [Concomitant]
     Active Substance: DONEPEZIL
  46. METHOCARBAMOL. [Concomitant]
     Active Substance: METHOCARBAMOL
  47. IMITREX DF [Concomitant]
     Active Substance: SUMATRIPTAN SUCCINATE
  48. PERMETHRIN. [Concomitant]
     Active Substance: PERMETHRIN
  49. ISENTRESS [Concomitant]
     Active Substance: RALTEGRAVIR POTASSIUM
  50. PROMETHAZINE [Concomitant]
     Active Substance: PROMETHAZINE HYDROCHLORIDE
  51. TRIAMCINOLONE ACETONIDE. [Concomitant]
     Active Substance: TRIAMCINOLONE ACETONIDE
  52. RITONAVIR. [Concomitant]
     Active Substance: RITONAVIR
  53. HYDROCORTISONE. [Concomitant]
     Active Substance: HYDROCORTISONE
     Route: 061

REACTIONS (6)
  - Osteoporosis [Not Recovered/Not Resolved]
  - Bone density decreased [Unknown]
  - Bone loss [Unknown]
  - Hip arthroplasty [Recovered/Resolved]
  - Osteopenia [Not Recovered/Not Resolved]
  - Osteonecrosis [Not Recovered/Not Resolved]

NARRATIVE: CASE EVENT DATE: 20160608
